FAERS Safety Report 4369737-7 (Version None)
Quarter: 2004Q2

REPORT INFORMATION
  Report Type: 
  Country: None (occurrence: None)
  Receive Date: 20040528
  Receipt Date: 20040518
  Transmission Date: 20050107
  Serious: Yes (Other)
  Sender: FDA-Public Use
  Company Number: 2004032844

PATIENT
  Age: 52 Year
  Sex: Female
  Weight: 104.3273 kg

DRUGS (4)
  1. ATARAX [Suspect]
     Indication: URTICARIA
     Dosage: 10 MG (10 MG, 1 IN 2 D), ORAL
     Route: 048
  2. VISTARIL [Suspect]
     Indication: URTICARIA
     Dosage: INTRAMUSCULAR
     Route: 030
     Dates: start: 20030501
  3. RANITIDINE HYDROCHLORIDE [Suspect]
     Indication: ILL-DEFINED DISORDER
     Dosage: ORAL
     Route: 048
     Dates: start: 20040101
  4. ALPRAZOLAM [Concomitant]

REACTIONS (5)
  - ANGIONEUROTIC OEDEMA [None]
  - DRUG INEFFECTIVE [None]
  - FEELING ABNORMAL [None]
  - HEADACHE [None]
  - URTICARIA [None]
